FAERS Safety Report 17652325 (Version 3)
Quarter: 2021Q1

REPORT INFORMATION
  Report Type: Spontaneous
  Country: US (occurrence: US)
  Receive Date: 20200409
  Receipt Date: 20210304
  Transmission Date: 20210419
  Serious: Yes (Other)
  Sender: FDA-Public Use
  Company Number: US-NAPPMUNDI-USA-2020-0150985

PATIENT
  Sex: Female

DRUGS (3)
  1. OXYCODONE HCL CR TABLETS (SIMILAR TO NDA 22?272) [Suspect]
     Active Substance: OXYCODONE HYDROCHLORIDE
     Indication: PAIN
     Dosage: 75?90 MG, Q4H
     Route: 048
     Dates: start: 2004, end: 2013
  2. ADDERALL [Concomitant]
     Active Substance: AMPHETAMINE ASPARTATE\AMPHETAMINE SULFATE\DEXTROAMPHETAMINE SACCHARATE\DEXTROAMPHETAMINE SULFATE
     Indication: PAIN
     Dosage: UNK
     Route: 048
  3. OXYCODONE HYDROCHLORIDE (SIMILAR TO NDA 22?272) [Suspect]
     Active Substance: OXYCODONE HYDROCHLORIDE
     Indication: PAIN
     Dosage: 90 MG, Q8? 12H
     Route: 048
     Dates: start: 2006

REACTIONS (15)
  - Drug withdrawal syndrome [Unknown]
  - Breakthrough pain [Unknown]
  - Personality change [Unknown]
  - Sleep disorder [Unknown]
  - Unevaluable event [Unknown]
  - Impaired driving ability [Unknown]
  - Fall [Unknown]
  - Rib fracture [Unknown]
  - Drug dependence [Recovering/Resolving]
  - Wound infection [Unknown]
  - Syncope [Unknown]
  - Scar [Unknown]
  - Chronic kidney disease [Unknown]
  - Lung perforation [Unknown]
  - Symptom masked [Unknown]
